FAERS Safety Report 7131311-7 (Version None)
Quarter: 2010Q4

REPORT INFORMATION
  Report Type: 
  Country: None (occurrence: None)
  Receive Date: 20101201
  Receipt Date: 20101124
  Transmission Date: 20110411
  Serious: Yes (Other)
  Sender: FDA-Public Use
  Company Number: US-AMGEN-KDL188216

PATIENT

DRUGS (3)
  1. ENBREL [Suspect]
     Indication: PSORIATIC ARTHROPATHY
     Dosage: 50 MG, QWK
     Route: 058
     Dates: start: 20060721
  2. ENBREL [Suspect]
     Dates: start: 20061001
  3. METHOTREXATE [Concomitant]
     Dosage: 12.5 MG, UNK
     Dates: start: 20060601

REACTIONS (9)
  - BLOOD COUNT ABNORMAL [None]
  - INJECTION SITE HAEMATOMA [None]
  - INJECTION SITE PAIN [None]
  - LIVER FUNCTION TEST ABNORMAL [None]
  - PAIN [None]
  - PSORIASIS [None]
  - PYREXIA [None]
  - SYSTEMIC LUPUS ERYTHEMATOSUS [None]
  - VITREOUS FLOATERS [None]
